FAERS Safety Report 14992345 (Version 2)
Quarter: 2018Q2

REPORT INFORMATION
  Report Type: Report from Study
  Country: CA (occurrence: CA)
  Receive Date: 20180609
  Receipt Date: 20180613
  Transmission Date: 20180711
  Serious: Yes (Hospitalization, Other)
  Sender: FDA-Public Use
  Company Number: CA-AMGEN-CANSL2018076281

PATIENT
  Sex: Female

DRUGS (1)
  1. PROLIA [Suspect]
     Active Substance: DENOSUMAB
     Indication: PRODUCT USED FOR UNKNOWN INDICATION
     Dosage: UNK, Q6MO
     Route: 065

REACTIONS (3)
  - Chronic obstructive pulmonary disease [Unknown]
  - Cellulitis [Unknown]
  - Arthritis [Unknown]
